FAERS Safety Report 5642473-2 (Version None)
Quarter: 2008Q1

REPORT INFORMATION
  Report Type: 
  Country: None (occurrence: None)
  Receive Date: 20080228
  Receipt Date: 20080218
  Transmission Date: 20080703
  Serious: Yes (Other)
  Sender: FDA-Public Use
  Company Number: JP-JNJFOC-20080205377

PATIENT
  Age: 75 Year
  Sex: Female

DRUGS (3)
  1. RISPERDAL [Suspect]
     Indication: RESTLESSNESS
     Route: 048
  2. LEVOMEPROAZINE MALEATE [Concomitant]
     Indication: RESTLESSNESS
     Route: 048
  3. LEVOMEPROAZINE MALEATE [Concomitant]
     Indication: INSOMNIA
     Route: 048

REACTIONS (18)
  - BLOOD AMYLASE INCREASED [None]
  - BLOOD GLUCOSE DECREASED [None]
  - BLOOD THYROID STIMULATING HORMONE INCREASED [None]
  - FALL [None]
  - GAIT DISTURBANCE [None]
  - HAEMATOCRIT DECREASED [None]
  - HAEMOGLOBIN DECREASED [None]
  - HERPES ZOSTER [None]
  - HYPOALBUMINAEMIA [None]
  - HYPOKINESIA [None]
  - HYPOPROTEINAEMIA [None]
  - HYPOTHERMIA [None]
  - INCONTINENCE [None]
  - MENTAL DISORDER [None]
  - RED BLOOD CELL COUNT DECREASED [None]
  - SPEECH DISORDER [None]
  - WEIGHT DECREASED [None]
  - WHITE BLOOD CELL COUNT DECREASED [None]
